FAERS Safety Report 11467701 (Version 3)
Quarter: 2015Q4

REPORT INFORMATION
  Report Type: Report from Study
  Country: BR (occurrence: BR)
  Receive Date: 20150908
  Receipt Date: 20151228
  Transmission Date: 20160304
  Serious: Yes (Hospitalization, Other)
  Sender: FDA-Public Use
  Company Number: PHHY2015BR107109

PATIENT
  Sex: Male
  Weight: 62 kg

DRUGS (3)
  1. FOLIC ACID. [Concomitant]
     Active Substance: FOLIC ACID
     Indication: PRODUCT USED FOR UNKNOWN INDICATION
     Dosage: UNK UNK, QD (IN THE MORNING)
     Route: 065
  2. EXJADE [Suspect]
     Active Substance: DEFERASIROX
     Indication: THALASSAEMIA BETA
     Dosage: 1 DF OF 500 MG, TID (ONE IN THE MORNING, ONE IN THE AFTERNOON AND ONE AT NIGHT)
     Route: 048
  3. EXJADE [Suspect]
     Active Substance: DEFERASIROX
     Dosage: 3 DF OF 500 MG, QD (IN THE MORNING)
     Route: 048

REACTIONS (10)
  - Type 1 diabetes mellitus [Unknown]
  - Memory impairment [Unknown]
  - Ageusia [Unknown]
  - Inappropriate schedule of drug administration [Unknown]
  - Weight decreased [Unknown]
  - Liver disorder [Unknown]
  - Coronary artery insufficiency [Unknown]
  - Ischaemic cardiomyopathy [Unknown]
  - Platelet count decreased [Unknown]
  - Hypertension [Unknown]
